FAERS Safety Report 5408199-5 (Version None)
Quarter: 2007Q3

REPORT INFORMATION
  Report Type: 
  Country: None (occurrence: None)
  Receive Date: 20070808
  Receipt Date: 20070730
  Transmission Date: 20080115
  Serious: Yes (Other)
  Sender: FDA-Public Use
  Company Number: US-ELI_LILLY_AND_COMPANY-US200707007069

PATIENT
  Age: 55 Year
  Sex: Female

DRUGS (5)
  1. ZYPREXA [Suspect]
     Indication: SCHIZOPHRENIA, PARANOID TYPE
     Dosage: 5 MG, UNK
     Dates: start: 19980101
  2. ZYPREXA [Suspect]
     Dosage: 2.5 MG, UNK
  3. ACTONEL [Concomitant]
     Indication: OSTEOPENIA
  4. LEVOTHYROXINE SODIUM [Concomitant]
     Indication: BLOOD THYROID STIMULATING HORMONE DECREASED
  5. RISPERIDONE [Concomitant]

REACTIONS (5)
  - COLD TYPE HAEMOLYTIC ANAEMIA [None]
  - CONSTIPATION [None]
  - FEELING HOT [None]
  - HEAT EXHAUSTION [None]
  - TEMPERATURE INTOLERANCE [None]
